FAERS Safety Report 22266746 (Version 1)
Quarter: 2023Q2

REPORT INFORMATION
  Report Type: Spontaneous
  Country: DE (occurrence: DE)
  Receive Date: 20230428
  Receipt Date: 20230428
  Transmission Date: 20230722
  Serious: Yes (Life-Threatening)
  Sender: FDA-Public Use
  Company Number: DE-002147023-NVSC2023DE098028

PATIENT
  Age: 66 Year
  Sex: Female

DRUGS (3)
  1. OLANZAPINE [Suspect]
     Active Substance: OLANZAPINE
     Indication: Sleep disorder
     Dosage: 10 MG IN MORNING AND 20 MG IN EVENING (1-0-2)
     Route: 065
  2. OLANZAPINE [Suspect]
     Active Substance: OLANZAPINE
     Indication: Panic disorder
     Dosage: 5 MG IN THE MORNING AND 10 MG IN EVENING (1-0-2)
     Route: 065
     Dates: end: 202302
  3. OLANZAPINE [Suspect]
     Active Substance: OLANZAPINE
     Indication: Anxiety disorder

REACTIONS (7)
  - Drug withdrawal syndrome [Unknown]
  - Insomnia [Unknown]
  - Polycythaemia vera [Unknown]
  - Splenomegaly [Unknown]
  - Hepatomegaly [Unknown]
  - Product use in unapproved indication [Unknown]
  - Intentional product use issue [Unknown]
